FAERS Safety Report 12253460 (Version 1)
Quarter: 2016Q2

REPORT INFORMATION
  Report Type: Spontaneous
  Country: CN (occurrence: CN)
  Receive Date: 20160411
  Receipt Date: 20160411
  Transmission Date: 20160815
  Serious: Yes (Life-Threatening)
  Sender: FDA-Public Use
  Company Number: CN-PFIZER INC-2016200814

PATIENT
  Age: 49 Year
  Sex: Female
  Weight: 37 kg

DRUGS (4)
  1. LI FU XING [Concomitant]
     Indication: PNEUMONIA FUNGAL
     Dosage: 0.2 G, 2X/DAY
     Route: 041
     Dates: start: 20151010, end: 20151013
  2. VFEND [Suspect]
     Active Substance: VORICONAZOLE
     Indication: PNEUMONIA FUNGAL
     Dosage: 200 MG, 2X/DAY
     Route: 041
     Dates: start: 20151010, end: 20151013
  3. VORICONAZOLE. [Suspect]
     Active Substance: VORICONAZOLE
     Indication: PNEUMONIA FUNGAL
     Dosage: UNK
     Route: 048
     Dates: start: 20151013, end: 20151014
  4. LI FU XING [Concomitant]
     Indication: BACTERIAL INFECTION

REACTIONS (4)
  - Depressed level of consciousness [Recovered/Resolved]
  - Mental disorder [Recovered/Resolved]
  - Delirium [Recovered/Resolved]
  - Illusion [Recovered/Resolved]

NARRATIVE: CASE EVENT DATE: 20151013
